FAERS Safety Report 6635961-3 (Version None)
Quarter: 2010Q1

REPORT INFORMATION
  Report Type: 
  Country: None (occurrence: None)
  Receive Date: 20100316
  Receipt Date: 20100309
  Transmission Date: 20100710
  Serious: Yes (Life-Threatening, Hospitalization, Other)
  Sender: FDA-Public Use
  Company Number: FR-BRISTOL-MYERS SQUIBB COMPANY-15012925

PATIENT
  Age: 83 Year
  Sex: Female

DRUGS (14)
  1. COUMADIN [Interacting]
     Indication: ATRIAL FIBRILLATION
     Route: 048
     Dates: start: 20091214, end: 20091217
  2. COUMADIN [Interacting]
     Indication: ARRHYTHMIA
     Route: 048
     Dates: start: 20091214, end: 20091217
  3. IXPRIM [Interacting]
     Dosage: 1DF-2 UNITS NOT MENTIONED
     Route: 048
     Dates: start: 20091215, end: 20091217
  4. CALCIPARINE [Suspect]
     Indication: ATRIAL FIBRILLATION
     Route: 058
     Dates: start: 20091214, end: 20091217
  5. CALCIPARINE [Suspect]
     Indication: ARRHYTHMIA
     Route: 058
     Dates: start: 20091214, end: 20091217
  6. DIGOXIN [Suspect]
     Indication: ATRIAL FIBRILLATION
     Dates: start: 20091214
  7. DIGOXIN [Suspect]
     Indication: ARRHYTHMIA
     Dates: start: 20091214
  8. LAROXYL [Concomitant]
     Dosage: 1DF-25 UNITS NOT MENTIONED
  9. UNICORDIUM [Concomitant]
     Dosage: 1DF-100 UNITS NOT MENTIONED
  10. CIBACENE [Concomitant]
     Dosage: 1DF-5 UNITS NOT MENTIONED
  11. TEMESTA [Concomitant]
     Dosage: 1DF-2.5 UNITS NOT MENTIONED
  12. NITRODERM [Concomitant]
     Dosage: 1DF-5 UNITS NOT MENTIONED
  13. LAMALINE [Concomitant]
  14. ROCEPHIN [Concomitant]
     Dates: start: 20091211, end: 20091214

REACTIONS (6)
  - CARDIO-RESPIRATORY ARREST [None]
  - DRUG INTERACTION [None]
  - EPILEPSY [None]
  - INTERNATIONAL NORMALISED RATIO INCREASED [None]
  - MUSCLE HAEMORRHAGE [None]
  - SHOCK HAEMORRHAGIC [None]
